FAERS Safety Report 8834314 (Version 7)
Quarter: 2013Q2

REPORT INFORMATION
  Report Type: Spontaneous
  Country: US (occurrence: US)
  Receive Date: 20121010
  Receipt Date: 20130429
  Transmission Date: 20140414
  Serious: Yes (Other)
  Sender: FDA-Public Use
  Company Number: US-009507513-1210USA003982

PATIENT
  Age: 45 Year
  Sex: Female
  Weight: 77.98 kg

DRUGS (7)
  1. PEGINTRON [Suspect]
     Indication: HEPATITIS C
     Dosage: UNK
     Route: 058
     Dates: start: 20120926, end: 20130410
  2. RIBAPAK [Suspect]
     Indication: HEPATITIS C
     Dosage: UNK
     Dates: start: 20120926, end: 201210
  3. RIBAPAK [Suspect]
     Dosage: DOSE CHANGED TO 400 (UNITS UNKNOWN), QD
     Dates: start: 201210, end: 2012
  4. RIBAPAK [Suspect]
     Dosage: 1000 MG, UNKNOWN
  5. RIBAPAK [Suspect]
     Dosage: 800 MG, UNKNOWN
  6. RIBAPAK [Suspect]
     Dosage: 600 MG, UNKNOWN
     Dates: end: 20130417
  7. VICTRELIS [Suspect]
     Indication: HEPATITIS C
     Dosage: UNK
     Dates: start: 20121024, end: 20130417

REACTIONS (53)
  - Blood potassium decreased [Unknown]
  - Hypokalaemia [Unknown]
  - Headache [Unknown]
  - Pruritus [Recovered/Resolved]
  - Pyrexia [Unknown]
  - Dry skin [Recovered/Resolved]
  - Acne [Recovered/Resolved]
  - Injection site pruritus [Recovered/Resolved]
  - Feeling abnormal [Unknown]
  - Insomnia [Unknown]
  - Myalgia [Unknown]
  - Injection site bruising [Unknown]
  - Feeling abnormal [Unknown]
  - Dry mouth [Unknown]
  - Skin odour abnormal [Unknown]
  - Injection site rash [Unknown]
  - Pruritus [Unknown]
  - Poor quality sleep [Unknown]
  - Contusion [Unknown]
  - Haematoma [Unknown]
  - Fatigue [Unknown]
  - Dyspnoea [Unknown]
  - Bone pain [Unknown]
  - Malaise [Unknown]
  - Asthenia [Unknown]
  - Fatigue [Unknown]
  - Chest pain [Unknown]
  - Myalgia [Unknown]
  - Pain [Unknown]
  - Haemoglobin decreased [Unknown]
  - Anaemia [Unknown]
  - Anaemia [Unknown]
  - Anaemia [Unknown]
  - Confusional state [Unknown]
  - Memory impairment [Unknown]
  - Asthenia [Unknown]
  - Gait disturbance [Recovering/Resolving]
  - Dry mouth [Unknown]
  - Depression [Unknown]
  - Mental status changes [Unknown]
  - Arthralgia [Unknown]
  - Myalgia [Unknown]
  - Weight decreased [Unknown]
  - Pain [Unknown]
  - Fatigue [Unknown]
  - Blood iron decreased [Unknown]
  - Blood potassium decreased [Unknown]
  - Hypokalaemia [Unknown]
  - Dysgeusia [Unknown]
  - Decreased appetite [Unknown]
  - Dry mouth [Unknown]
  - Anaemia [Unknown]
  - Haemoglobin decreased [Unknown]
